FAERS Safety Report 24438800 (Version 1)
Quarter: 2024Q4

REPORT INFORMATION
  Report Type: Spontaneous
  Country: US (occurrence: None)
  Receive Date: 20241014
  Receipt Date: 20241014
  Transmission Date: 20250115
  Serious: Yes (Other)
  Sender: Public
  Company Number: None

PATIENT
  Age: 43 Year
  Sex: Male
  Weight: 78.75 kg

DRUGS (4)
  1. DUPIXENT [Suspect]
     Active Substance: DUPILUMAB
     Indication: Nasal polyps
     Dosage: OTHER QUANTITY : 2 ML;?OTHER FREQUENCY : ONCE EVERY 2 WEEKS;?OTHER ROUTE : SUBCUTANEOUS INJECTION;?
     Route: 050
  2. MOMETASONE [Concomitant]
     Active Substance: MOMETASONE
  3. OLOPATADINE [Concomitant]
     Active Substance: OLOPATADINE
  4. ZYRTEC [Concomitant]
     Active Substance: CETIRIZINE HYDROCHLORIDE

REACTIONS (3)
  - Arthralgia [None]
  - Headache [None]
  - Therapy cessation [None]

NARRATIVE: CASE EVENT DATE: 20240914
